FAERS Safety Report 6680760-X (Version None)
Quarter: 2010Q2

REPORT INFORMATION
  Report Type: 
  Country: None (occurrence: None)
  Receive Date: 20100414
  Receipt Date: 20100409
  Transmission Date: 20101027
  Serious: Yes (Other)
  Sender: FDA-Public Use
  Company Number: US-CELGENEUS-163-20785-09101548

PATIENT
  Sex: Female
  Weight: 55.842 kg

DRUGS (30)
  1. THALOMID [Suspect]
     Route: 048
     Dates: start: 20070501
  2. THALOMID [Suspect]
     Dosage: 200 MG/DAY INCREASING TO 300 MG/DAY
     Route: 048
     Dates: start: 20070601
  3. THALOMID [Suspect]
     Route: 048
     Dates: start: 20070701, end: 20070802
  4. THALOMID [Suspect]
     Dosage: 200 MG DAILY
     Route: 048
     Dates: start: 20070829
  5. THALOMID [Suspect]
     Dosage: 300 MG DAILY
     Route: 048
     Dates: start: 20081001
  6. THALOMID [Suspect]
     Route: 048
     Dates: end: 20090911
  7. CELEBREX [Concomitant]
     Route: 065
     Dates: start: 20070501
  8. CELEBREX [Concomitant]
     Route: 065
     Dates: start: 20090501, end: 20091001
  9. CELEBREX [Concomitant]
     Route: 065
     Dates: start: 20070801
  10. CELEBREX [Concomitant]
     Route: 065
  11. SENOKOT [Concomitant]
     Indication: DRUG USE FOR UNKNOWN INDICATION
     Route: 065
  12. AMOXICILLIN [Concomitant]
     Route: 065
  13. ASPIRIN [Concomitant]
     Route: 065
     Dates: start: 20070801
  14. LOESTRIN 1.5/30 [Concomitant]
     Route: 065
  15. VENTOLIN [Concomitant]
     Indication: ASTHMA
     Route: 065
     Dates: start: 20030101
  16. VITAMIN TAB [Concomitant]
     Indication: DRUG USE FOR UNKNOWN INDICATION
     Route: 048
     Dates: start: 20091012
  17. ZOFRAN [Concomitant]
     Indication: NAUSEA
     Route: 065
     Dates: start: 20091001
  18. H1N1 VACCINE [Concomitant]
     Route: 065
     Dates: start: 20091110, end: 20091110
  19. ADVAIR DISKUS 100/50 [Concomitant]
     Indication: DRUG USE FOR UNKNOWN INDICATION
     Route: 065
  20. IRON [Concomitant]
     Indication: DRUG USE FOR UNKNOWN INDICATION
     Route: 065
  21. PROMETHAZINE [Concomitant]
     Indication: DRUG USE FOR UNKNOWN INDICATION
     Route: 065
  22. METOCLOPRAMIDE HYDROCHLORIDE [Concomitant]
     Indication: DRUG USE FOR UNKNOWN INDICATION
     Route: 065
  23. LESSINA [Concomitant]
     Route: 065
  24. FEOSOL [Concomitant]
     Indication: DRUG USE FOR UNKNOWN INDICATION
     Route: 065
  25. NAPROSYN [Concomitant]
     Indication: DRUG USE FOR UNKNOWN INDICATION
     Route: 065
  26. IBUPROFEN [Concomitant]
     Indication: DRUG USE FOR UNKNOWN INDICATION
     Route: 065
  27. ORTHO TRI-CYCLEN [Concomitant]
     Indication: DRUG USE FOR UNKNOWN INDICATION
     Route: 065
  28. HYDROCODONE BITARTRATE [Concomitant]
     Indication: DRUG USE FOR UNKNOWN INDICATION
     Route: 065
  29. LOW ESTROGEN [Concomitant]
     Route: 065
  30. PRILOSEC [Concomitant]
     Indication: NAUSEA
     Route: 065
     Dates: start: 20090701

REACTIONS (8)
  - BLINDNESS TRANSIENT [None]
  - COUGH [None]
  - DISEASE PROGRESSION [None]
  - FATIGUE [None]
  - OESOPHAGEAL RUPTURE [None]
  - PREGNANCY [None]
  - TREATMENT NONCOMPLIANCE [None]
  - VOMITING [None]
